FAERS Safety Report 19109272 (Version 1)
Quarter: 2021Q2

REPORT INFORMATION
  Report Type: Spontaneous
  Country: FR (occurrence: FR)
  Receive Date: 20210409
  Receipt Date: 20210409
  Transmission Date: 20210717
  Serious: Yes (Hospitalization)
  Sender: FDA-Public Use
  Company Number: FR-AUROBINDO-AUR-APL-2021-014348

PATIENT
  Age: 19 Year
  Sex: Male

DRUGS (1)
  1. VALPROIC ACID ARROW ORAL SOLUTION 200MG/ML [Suspect]
     Active Substance: VALPROIC ACID
     Indication: AFFECTIVE DISORDER
     Dosage: 1500 MILLIGRAM
     Route: 048
     Dates: start: 20210123, end: 20210301

REACTIONS (1)
  - Head titubation [Recovered/Resolved]

NARRATIVE: CASE EVENT DATE: 20210223
